FAERS Safety Report 10234582 (Version 2)
Quarter: 2014Q2

REPORT INFORMATION
  Report Type: Spontaneous
  Country: AU (occurrence: AU)
  Receive Date: 20140613
  Receipt Date: 20140625
  Transmission Date: 20141212
  Serious: Yes (Death)
  Sender: FDA-Public Use
  Company Number: AU-ROCHE-1418389

PATIENT
  Age: 50 Year
  Sex: Male
  Weight: 80.2 kg

DRUGS (6)
  1. PEGASYS [Suspect]
     Indication: HEPATITIS C
     Dosage: 4TH WEEK
     Route: 058
     Dates: start: 20140130
  2. RIBAVIRIN [Suspect]
     Indication: HEPATITIS C
     Dosage: 4TH WEEK
     Route: 048
     Dates: start: 20140130
  3. AMITRIPTYLINE [Concomitant]
     Route: 065
  4. OMEPRAZOLE [Concomitant]
     Route: 065
  5. TRAMADOL [Concomitant]
     Dosage: BD IF REQUIRED
     Route: 065
  6. QUETIAPINE [Concomitant]
     Route: 065

REACTIONS (1)
  - Death [Fatal]
